FAERS Safety Report 17133338 (Version 1)
Quarter: 2019Q4

REPORT INFORMATION
  Report Type: Spontaneous
  Country: DK (occurrence: DK)
  Receive Date: 20191210
  Receipt Date: 20191210
  Transmission Date: 20200122
  Serious: Yes (Hospitalization)
  Sender: FDA-Public Use
  Company Number: DK-TEVA-2019-DK-1148226

PATIENT
  Age: 54 Year
  Sex: Male

DRUGS (4)
  1. PREDNISOLONE. [Suspect]
     Active Substance: PREDNISOLONE
     Indication: URTICARIA
     Dosage: STRENGTH: 25 MG.?DOSE: 12.5-25 MG 1X DGL.
     Route: 048
     Dates: start: 20191026, end: 20191104
  2. CLOPIDOGREL [Concomitant]
     Active Substance: CLOPIDOGREL BISULFATE
     Indication: THROMBOSIS PROPHYLAXIS
     Dosage: STRENGTH: 75 MG.
     Route: 048
     Dates: start: 20191008, end: 20191028
  3. ACETYLSALICYLIC ACID [Concomitant]
     Active Substance: ASPIRIN
     Indication: THROMBOSIS PROPHYLAXIS
     Dosage: STRENGTH: 75 MG.
     Route: 048
     Dates: start: 20191008, end: 20191028
  4. CALCIPOTRIOL OG BETAMETHASON [Concomitant]
     Indication: PSORIASIS
     Dosage: 1 DOSAGE FORM, STRENGTH: 50 + 500 MICROGRAMS/G.
     Route: 003
     Dates: start: 20191028

REACTIONS (6)
  - Psoriatic arthropathy [Unknown]
  - Pain [Unknown]
  - Arthralgia [Unknown]
  - C-reactive protein increased [Recovering/Resolving]
  - Pyrexia [Unknown]
  - Oedema peripheral [Unknown]

NARRATIVE: CASE EVENT DATE: 20191028
